FAERS Safety Report 8916112 (Version 2)
Quarter: 2013Q2

REPORT INFORMATION
  Report Type: Report from Study
  Country: US (occurrence: US)
  Receive Date: 20121120
  Receipt Date: 20130620
  Transmission Date: 20140414
  Serious: Yes (Hospitalization)
  Sender: FDA-Public Use
  Company Number: US-TEVA-368104USA

PATIENT
  Age: 35 Year
  Sex: Female
  Weight: 60.38 kg

DRUGS (25)
  1. HYDROXYZINE [Concomitant]
     Dosage: TID
     Route: 048
  2. LOPERAMIDE [Concomitant]
     Dosage: QID
     Route: 048
  3. ZOFRAN [Concomitant]
     Dosage: Q4HOURS
  4. OXYCODONE [Concomitant]
     Dosage: Q4HOURS
  5. OXYMETAZOLINE [Concomitant]
     Dosage: 2 SPRAYS
     Route: 045
  6. MORPHINE [Concomitant]
     Dosage: 60 MILLIGRAM DAILY; Q 12 HOURS
  7. MAGNESIUM OXIDE [Concomitant]
     Dosage: 800 MILLIGRAM DAILY;
  8. DOXYCYCLINE [Concomitant]
     Dosage: 200 MILLIGRAM DAILY;
  9. PERCOCET [Concomitant]
     Dosage: QID
  10. PERCOCET [Concomitant]
     Dosage: QID
  11. LAMICTAL [Concomitant]
     Dosage: QID
  12. LAMICTAL [Concomitant]
     Dosage: QID
  13. DEXAMETHASONE [Concomitant]
     Dosage: WITH TAXOL INFUSIONS SCHEDULE ON THE 30TH
  14. DEXAMETHASONE [Concomitant]
     Dosage: QID
  15. CHOLECALCIFEROL [Concomitant]
     Dosage: 5000 IU (INTERNATIONAL UNIT) DAILY;
     Route: 048
  16. NORETHINDRONE [Concomitant]
     Dosage: 10 MILLIGRAM DAILY;
     Route: 048
  17. CUSTIRSEN [Suspect]
     Indication: COLON CANCER
     Dosage: 91.4286 MILLIGRAM DAILY; WEEKLY
     Route: 042
     Dates: start: 20120910, end: 20121108
  18. PACLITAXEL [Suspect]
     Indication: COLON CANCER
     Dosage: 8.3333 MILLIGRAM DAILY; EVERY 21 DAYS
     Route: 042
     Dates: start: 20120830, end: 20121025
  19. CARBOPLATIN [Suspect]
     Indication: COLON CANCER
     Dosage: 3.5 AUC --EVERY 21 DAYS
     Route: 042
     Dates: start: 20120830, end: 20121025
  20. CALCIUM W/VITAMIN D NOS [Concomitant]
     Dosage: 600/100 UNITS
     Route: 048
  21. COMPAZINE [Concomitant]
     Dosage: EVERY 8 HOURS
     Route: 048
  22. POTASSIUM CHLORIDE [Concomitant]
     Dosage: 40 MILLIEQUIVALENTS DAILY;
     Route: 048
  23. PANTOPRAZOLE [Concomitant]
     Dosage: 40 MILLIGRAM DAILY;
     Route: 048
  24. MULTIVITAMIN [Concomitant]
     Dosage: 1 TABLET DAILY;
     Route: 048
  25. BENADRYL [Concomitant]
     Dosage: DAILY
     Route: 048

REACTIONS (2)
  - Back pain [Not Recovered/Not Resolved]
  - Vomiting [Not Recovered/Not Resolved]
